FAERS Safety Report 16024457 (Version 2)
Quarter: 2019Q2

REPORT INFORMATION
  Report Type: Spontaneous
  Country: US (occurrence: US)
  Receive Date: 20190301
  Receipt Date: 20190628
  Transmission Date: 20190711
  Serious: Yes (Other)
  Sender: FDA-Public Use
  Company Number: US-MYLANLABS-2018M1090279

PATIENT
  Sex: Female
  Weight: 77 kg

DRUGS (2)
  1. CITALOPRAM [Suspect]
     Active Substance: CITALOPRAM HYDROBROMIDE
     Indication: SLEEP DISORDER
     Dosage: 20 MILLIGRAM
     Route: 065
  2. CITALOPRAM [Suspect]
     Active Substance: CITALOPRAM HYDROBROMIDE
     Dosage: 10 MILLIGRAM
     Route: 065

REACTIONS (13)
  - Cardiac stress test abnormal [Unknown]
  - Electrocardiogram ST segment depression [Unknown]
  - Pain in jaw [Unknown]
  - Endothelial dysfunction [Unknown]
  - Epistaxis [Unknown]
  - Angina pectoris [Unknown]
  - Nasal ulcer [Unknown]
  - Blood pressure increased [Unknown]
  - Dyspnoea [Not Recovered/Not Resolved]
  - Microvascular coronary artery disease [Unknown]
  - Off label use [Unknown]
  - Oropharyngeal pain [Unknown]
  - Dyspnoea exertional [Not Recovered/Not Resolved]
